FAERS Safety Report 6523401-4 (Version None)
Quarter: 2009Q4

REPORT INFORMATION
  Report Type: 
  Country: None (occurrence: None)
  Receive Date: 20091231
  Receipt Date: 20091225
  Transmission Date: 20100525
  Serious: Yes (Death)
  Sender: FDA-Public Use
  Company Number: JP-ROCHE-676920

PATIENT
  Age: 45 Year
  Sex: Female

DRUGS (1)
  1. TAMIFLU [Suspect]
     Indication: INFLUENZA
     Route: 048
     Dates: start: 20091215, end: 20091201

REACTIONS (4)
  - CIRCULATORY COLLAPSE [None]
  - DISEASE PROGRESSION [None]
  - RESPIRATORY FAILURE [None]
  - SEPSIS [None]
